FAERS Safety Report 22063224 (Version 1)
Quarter: 2023Q1

REPORT INFORMATION
  Report Type: Spontaneous
  Country: US (occurrence: US)
  Receive Date: 20230306
  Receipt Date: 20230306
  Transmission Date: 20230418
  Serious: No
  Sender: FDA-Public Use
  Company Number: US-GILEAD-2023-0618705

PATIENT
  Sex: Female

DRUGS (2)
  1. EPCLUSA [Suspect]
     Active Substance: SOFOSBUVIR\VELPATASVIR
     Indication: Hepatitis C
     Dosage: 27 PILLS IN A WEEK
     Route: 065
     Dates: start: 20230221, end: 20230228
  2. SODIUM [Concomitant]
     Active Substance: SODIUM
     Indication: Bipolar disorder
     Dates: start: 20230221, end: 20230228

REACTIONS (1)
  - Overdose [Unknown]
